FAERS Safety Report 14458093 (Version 1)
Quarter: 2018Q1

REPORT INFORMATION
  Report Type: Spontaneous
  Country: US (occurrence: US)
  Receive Date: 20180129
  Receipt Date: 20180129
  Transmission Date: 20180509
  Serious: No
  Sender: FDA-Public Use
  Company Number: None

PATIENT
  Age: 62 Year
  Sex: Female

DRUGS (1)
  1. IBRANCE [Suspect]
     Active Substance: PALBOCICLIB
     Indication: BREAST CANCER
     Dosage: DAILY FOR 21 DAYS OF A 28 DAYS CYCLE
     Route: 048
     Dates: start: 20160203

REACTIONS (2)
  - Arthralgia [None]
  - Groin pain [None]

NARRATIVE: CASE EVENT DATE: 20180125
